FAERS Safety Report 18448564 (Version 1)
Quarter: 2020Q4

REPORT INFORMATION
  Report Type: Spontaneous
  Country: US (occurrence: US)
  Receive Date: 20201030
  Receipt Date: 20201030
  Transmission Date: 20210114
  Serious: No
  Sender: FDA-Public Use
  Company Number: US-TEVA-2020-US-1843025

PATIENT
  Age: 84 Year
  Sex: Female

DRUGS (1)
  1. ATENOLOL TEVA [Suspect]
     Active Substance: ATENOLOL
     Dosage: 100 MILLIGRAM DAILY; TOOK AT BEDTIME
     Route: 065
     Dates: start: 2018, end: 202008

REACTIONS (6)
  - Scratch [Unknown]
  - Pruritus [Unknown]
  - Rash [Not Recovered/Not Resolved]
  - Scab [Unknown]
  - Skin haemorrhage [Unknown]
  - Drug hypersensitivity [Unknown]

NARRATIVE: CASE EVENT DATE: 202001
